FAERS Safety Report 5488058-2 (Version None)
Quarter: 2007Q4

REPORT INFORMATION
  Report Type: 
  Country: None (occurrence: None)
  Receive Date: 20071002
  Receipt Date: 20070803
  Transmission Date: 20080405
  Serious: Yes (Other)
  Sender: FDA-Public Use
  Company Number: US-JNJFOC-20070801824

PATIENT
  Sex: 0

DRUGS (1)
  1. NATRECOR [Suspect]
     Indication: CARDIAC FAILURE
     Dosage: INTRAVENOUS
     Route: 042

REACTIONS (1)
  - HYPOTENSION [None]
